FAERS Safety Report 21146886 (Version 1)
Quarter: 2022Q3

REPORT INFORMATION
  Report Type: Spontaneous
  Country: US (occurrence: None)
  Receive Date: 20220728
  Receipt Date: 20220728
  Transmission Date: 20221026
  Serious: Yes (Other)
  Sender: FDA-Public Use
  Company Number: None

PATIENT
  Age: 65 Year
  Sex: Female
  Weight: 78.3 kg

DRUGS (1)
  1. CITROMA [Suspect]
     Active Substance: MAGNESIUM CITRATE
     Indication: Colonoscopy
     Dosage: OTHER QUANTITY : 10 OUNCE(S);?OTHER FREQUENCY : AT 5:30 PM PREP;?
     Route: 048
     Dates: start: 20220524, end: 20220524

REACTIONS (10)
  - Diarrhoea [None]
  - Abdominal pain upper [None]
  - Loss of consciousness [None]
  - Head injury [None]
  - Skin laceration [None]
  - Loss of consciousness [None]
  - Vertigo [None]
  - Atrioventricular block first degree [None]
  - Vomiting [None]
  - Concussion [None]

NARRATIVE: CASE EVENT DATE: 20220525
